FAERS Safety Report 6665542-7 (Version None)
Quarter: 2010Q2

REPORT INFORMATION
  Report Type: 
  Country: None (occurrence: None)
  Receive Date: 20100402
  Receipt Date: 20100324
  Transmission Date: 20101027
  Serious: Yes (Hospitalization, Disabling)
  Sender: FDA-Public Use
  Company Number: FR-ASTRAZENECA-2010SE13465

PATIENT
  Age: 634 Month
  Sex: Male
  Weight: 58 kg

DRUGS (10)
  1. SYMBICORT [Interacting]
     Indication: CHRONIC OBSTRUCTIVE PULMONARY DISEASE
     Dosage: ONE PUFF, TWO TIMES A DAY.
     Route: 055
  2. SYMBICORT [Interacting]
     Dosage: TWO PUFFS, TWO TIMES A DAY.
     Route: 055
     Dates: start: 20081201, end: 20100211
  3. KALETRA [Interacting]
     Route: 048
     Dates: start: 20061101, end: 20070501
  4. KALETRA [Interacting]
     Route: 048
     Dates: start: 20080218, end: 20091101
  5. TRUVADA [Suspect]
     Route: 048
     Dates: start: 20080218, end: 20091101
  6. ATACAND [Concomitant]
     Route: 048
  7. SEROPLEX [Concomitant]
     Route: 065
  8. BACTRIM [Concomitant]
     Route: 065
  9. FOLINORAL [Concomitant]
     Route: 065
  10. RIVOTRIL [Concomitant]
     Route: 065

REACTIONS (2)
  - DYSSTASIA [None]
  - OSTEONECROSIS [None]
